FAERS Safety Report 8340001-4 (Version None)
Quarter: 2012Q2

REPORT INFORMATION
  Report Type: 
  Country: None (occurrence: None)
  Receive Date: 20120507
  Receipt Date: 20090305
  Transmission Date: 20120825
  Serious: No
  Sender: FDA-Public Use
  Company Number: US-TEVA-2009001499

PATIENT
  Sex: Male
  Weight: 73.548 kg

DRUGS (10)
  1. TREANDA [Suspect]
     Indication: CHRONIC LYMPHOCYTIC LEUKAEMIA
     Route: 042
     Dates: start: 20090201
  2. OMEPRAZOLE [Concomitant]
  3. COMPAZINE [Concomitant]
  4. ADVAIR DISKUS 100/50 [Concomitant]
     Route: 055
  5. ASPIRIN [Concomitant]
  6. LOVASTATIN [Concomitant]
  7. NPH INSULIN [Concomitant]
  8. REGULAR INSULIN [Concomitant]
  9. LISINOPRIL [Concomitant]
  10. SIMVASTATIN [Concomitant]

REACTIONS (1)
  - RASH PRURITIC [None]
